FAERS Safety Report 5145907-5 (Version None)
Quarter: 2006Q4

REPORT INFORMATION
  Report Type: 
  Country: None (occurrence: None)
  Receive Date: 20061108
  Receipt Date: 20061026
  Transmission Date: 20070319
  Serious: Yes (Hospitalization)
  Sender: FDA-Public Use
  Company Number: US-AMGEN-STX198346

PATIENT
  Sex: Male

DRUGS (2)
  1. ENBREL [Suspect]
     Indication: PSORIATIC ARTHROPATHY
     Route: 058
     Dates: start: 20060118
  2. ENBREL [Suspect]
     Indication: PSORIASIS

REACTIONS (5)
  - CHOLECYSTECTOMY [None]
  - CONTUSION [None]
  - CORONARY ARTERY OCCLUSION [None]
  - INJECTION SITE BRUISING [None]
  - INJECTION SITE PAIN [None]
